FAERS Safety Report 24243206 (Version 2)
Quarter: 2024Q3

REPORT INFORMATION
  Report Type: Spontaneous
  Country: US (occurrence: US)
  Receive Date: 20240823
  Receipt Date: 20240909
  Transmission Date: 20241016
  Serious: No
  Sender: ABBVIE
  Company Number: US-ABBVIE-5881678

PATIENT
  Age: 55 Year
  Sex: Male
  Weight: 98 kg

DRUGS (4)
  1. HUMIRA [Suspect]
     Active Substance: ADALIMUMAB
     Indication: Rheumatoid arthritis
     Route: 058
     Dates: start: 202407
  2. HUMIRA [Suspect]
     Active Substance: ADALIMUMAB
     Route: 058
     Dates: start: 202404, end: 202407
  3. VITAMIN B12 [Concomitant]
     Active Substance: CYANOCOBALAMIN
     Indication: Vitamin supplementation
  4. CLOZAPINE [Concomitant]
     Active Substance: CLOZAPINE
     Indication: Anxiety
     Dosage: TIME INTERVAL: AS NECESSARY

REACTIONS (2)
  - Feeling hot [Not Recovered/Not Resolved]
  - Paraesthesia [Not Recovered/Not Resolved]

NARRATIVE: CASE EVENT DATE: 20240812
